FAERS Safety Report 5577838-0 (Version None)
Quarter: 2007Q4

REPORT INFORMATION
  Report Type: 
  Country: None (occurrence: None)
  Receive Date: 20071231
  Receipt Date: 20071228
  Transmission Date: 20080405
  Serious: Yes (Life-Threatening, Hospitalization)
  Sender: FDA-Public Use
  Company Number: PHBS2007CH21550

PATIENT
  Age: 58 Year
  Sex: Male

DRUGS (3)
  1. VOLTAREN [Suspect]
     Indication: BACK PAIN
     Dosage: 75 MG, UNK
     Route: 030
     Dates: start: 20071101
  2. MORPHINE [Concomitant]
     Dosage: 20 MG/DAY
     Dates: start: 20071101
  3. PREDNISONE TAB [Suspect]
     Indication: BACK PAIN
     Dosage: 60 MG/DAY
     Route: 058
     Dates: start: 20071115

REACTIONS (5)
  - CEREBRAL HAEMORRHAGE [None]
  - DISTURBANCE IN ATTENTION [None]
  - DRUG INTERACTION [None]
  - FALL [None]
  - HEMIPLEGIA [None]
